FAERS Safety Report 4988584-6 (Version None)
Quarter: 2006Q2

REPORT INFORMATION
  Report Type: 
  Country: None (occurrence: None)
  Receive Date: 20060502
  Receipt Date: 19960901
  Transmission Date: 20061013
  Serious: Yes (Hospitalization)
  Sender: FDA-Public Use
  Company Number: ES-JNJFOC-20060405055

PATIENT
  Age: 26 Day
  Sex: Female

DRUGS (1)
  1. DAKTARIN [Suspect]
     Indication: DRUG USE FOR UNKNOWN INDICATION
     Route: 048
     Dates: start: 19960812, end: 19960812

REACTIONS (3)
  - CYANOSIS [None]
  - DYSPNOEA [None]
  - INTENTIONAL DRUG MISUSE [None]
